FAERS Safety Report 13748981 (Version 1)
Quarter: 2017Q3

REPORT INFORMATION
  Report Type: Spontaneous
  Country: US (occurrence: US)
  Receive Date: 20170712
  Receipt Date: 20170712
  Transmission Date: 20171127
  Serious: Yes (Other)
  Sender: FDA-Public Use
  Company Number: None

PATIENT
  Age: 73 Year
  Sex: Female
  Weight: 76.95 kg

DRUGS (1)
  1. VANCOMYCIN HYDROCHLORIDE. [Suspect]
     Active Substance: VANCOMYCIN HYDROCHLORIDE
     Indication: URINARY TRACT INFECTION ENTEROCOCCAL
     Dosage: ?          OTHER STRENGTH:MG;QUANTITY:28 CAPSULE(S);?
     Route: 048
     Dates: start: 20170707, end: 20170708

REACTIONS (9)
  - Deafness [None]
  - Blood creatinine increased [None]
  - Drug hypersensitivity [None]
  - Pollakiuria [None]
  - Glomerular filtration rate decreased [None]
  - Ear disorder [None]
  - Ear pain [None]
  - Tinnitus [None]
  - Renal disorder [None]

NARRATIVE: CASE EVENT DATE: 20170707
